FAERS Safety Report 21764255 (Version 1)
Quarter: 2022Q4

REPORT INFORMATION
  Report Type: Report from Study
  Country: None (occurrence: US)
  Receive Date: 20221222
  Receipt Date: 20221222
  Transmission Date: 20230113
  Serious: No
  Sender: FDA-Public Use
  Company Number: US-AKCEA THERAPEUTICS, INC.-2022IS004452

PATIENT
  Age: 79 Year
  Sex: Female

DRUGS (2)
  1. TEGSEDI [Suspect]
     Active Substance: INOTERSEN SODIUM
     Indication: Hereditary neuropathic amyloidosis
     Route: 058
     Dates: start: 20181231
  2. DEVICE [Suspect]
     Active Substance: DEVICE

REACTIONS (5)
  - Glomerular filtration rate decreased [Unknown]
  - Protein urine present [Unknown]
  - Urine leukocyte esterase positive [Unknown]
  - Crystal urine present [Unknown]
  - Urinary casts present [Unknown]

NARRATIVE: CASE EVENT DATE: 20221212
